FAERS Safety Report 8325079-6 (Version None)
Quarter: 2012Q2

REPORT INFORMATION
  Report Type: 
  Country: None (occurrence: None)
  Receive Date: 20120427
  Receipt Date: 20120418
  Transmission Date: 20120825
  Serious: Yes (Hospitalization, Other)
  Sender: FDA-Public Use
  Company Number: MCA-N-12-037

PATIENT
  Age: 29 Year
  Sex: Female

DRUGS (4)
  1. SIROLIMUS [Concomitant]
  2. MYCOPHENOLATE MOFETIL [Concomitant]
  3. LEVOFLOXACIN [Suspect]
     Indication: PNEUMONIA
  4. CEFTRIAXONE [Concomitant]

REACTIONS (1)
  - ERYTHEMA NODOSUM [None]
